FAERS Safety Report 4580595-8 (Version None)
Quarter: 2005Q1

REPORT INFORMATION
  Report Type: 
  Country: None (occurrence: None)
  Receive Date: 20050214
  Receipt Date: 20040421
  Transmission Date: 20050727
  Serious: No
  Sender: FDA-Public Use
  Company Number: US-GLAXOSMITHKLINE-A0507897A

PATIENT
  Age: 23 Year
  Sex: Female

DRUGS (4)
  1. LAMICTAL [Suspect]
     Indication: EPILEPSY
     Dosage: 50MG PER DAY
     Route: 048
     Dates: start: 20040410
  2. TEGRETOL [Concomitant]
  3. NEURONTIN [Concomitant]
  4. DIAZEPAM [Concomitant]

REACTIONS (1)
  - SYNCOPE [None]
